FAERS Safety Report 14203175 (Version 1)
Quarter: 2017Q4

REPORT INFORMATION
  Report Type: Spontaneous
  Country: US (occurrence: US)
  Receive Date: 20171120
  Receipt Date: 20171120
  Transmission Date: 20180321
  Serious: No
  Sender: FDA-Public Use
  Company Number: US-SHIRE-US201725332

PATIENT
  Age: 58 Year

DRUGS (1)
  1. XIIDRA [Suspect]
     Active Substance: LIFITEGRAST
     Indication: PRODUCT USED FOR UNKNOWN INDICATION
     Dosage: UNK
     Route: 047

REACTIONS (5)
  - Product taste abnormal [Recovered/Resolved]
  - Vision blurred [Recovered/Resolved]
  - Instillation site reaction [Recovered/Resolved]
  - Pain [Recovered/Resolved]
  - Instillation site pain [Recovered/Resolved]

NARRATIVE: CASE EVENT DATE: 20170922
